FAERS Safety Report 12419009 (Version 3)
Quarter: 2016Q2

REPORT INFORMATION
  Report Type: Spontaneous
  Country: US (occurrence: US)
  Receive Date: 20160531
  Receipt Date: 20160618
  Transmission Date: 20160815
  Serious: Yes (Disabling)
  Sender: FDA-Public Use
  Company Number: US-009507513-1605USA013976

PATIENT
  Age: 37 Year
  Sex: Male
  Weight: 81.63 kg

DRUGS (4)
  1. DULERA [Suspect]
     Active Substance: FORMOTEROL FUMARATE DIHYDRATE\MOMETASONE FUROATE
     Indication: PNEUMONIA
     Dosage: 2 PUFFS MORNING AND NIGHT, TWICE DAILY
     Route: 055
     Dates: start: 20151129, end: 20151129
  2. CORTISONE ACETATE. [Concomitant]
     Active Substance: CORTISONE ACETATE
  3. LEVAQUIN [Concomitant]
     Active Substance: LEVOFLOXACIN
     Dosage: UNK
  4. MUCINEX [Concomitant]
     Active Substance: GUAIFENESIN
     Dosage: 2 PUFFS MORNING AND NIGHT

REACTIONS (3)
  - Drug ineffective [Not Recovered/Not Resolved]
  - Heart rate increased [Not Recovered/Not Resolved]
  - Migraine [Not Recovered/Not Resolved]

NARRATIVE: CASE EVENT DATE: 20151129
